FAERS Safety Report 23963545 (Version 3)
Quarter: 2024Q3

REPORT INFORMATION
  Report Type: Spontaneous
  Country: US (occurrence: US)
  Receive Date: 20240611
  Receipt Date: 20240813
  Transmission Date: 20241017
  Serious: Yes (Other)
  Sender: NOVARTIS
  Company Number: US-002147023-NVSC2024US121435

PATIENT
  Age: 3 Month

DRUGS (1)
  1. ZOLGENSMA [Suspect]
     Active Substance: ONASEMNOGENE ABEPARVOVEC-XIOI
     Indication: Spinal muscular atrophy
     Dosage: 1.1X10E14 VECTOR GENOMES/KG, ONCE/SINGLE
     Route: 042
     Dates: start: 20240321, end: 20240321

REACTIONS (1)
  - Infantile spasms [Unknown]
